FAERS Safety Report 17483772 (Version 1)
Quarter: 2020Q1

REPORT INFORMATION
  Report Type: Spontaneous
  Country: US (occurrence: US)
  Receive Date: 20200302
  Receipt Date: 20200302
  Transmission Date: 20200409
  Serious: No
  Sender: FDA-Public Use
  Company Number: US-AMAG PHARMACEUTICALS, INC.-AMAG202000674

PATIENT
  Sex: Female

DRUGS (1)
  1. VYLEESI [Suspect]
     Active Substance: BREMELANOTIDE ACETATE
     Indication: LIBIDO DECREASED
     Dosage: THE PATIENT STARTED TAKING VYLEESI WITHIN THE LAST 3 WEEKS.
     Route: 058
     Dates: start: 202002

REACTIONS (1)
  - Somnolence [Not Recovered/Not Resolved]
